FAERS Safety Report 7797201-1 (Version None)
Quarter: 2011Q4

REPORT INFORMATION
  Report Type: 
  Country: None (occurrence: None)
  Receive Date: 20111005
  Receipt Date: 20110922
  Transmission Date: 20120403
  Serious: Yes (Other)
  Sender: FDA-Public Use
  Company Number: PHHY2011BR84918

PATIENT
  Sex: Female

DRUGS (3)
  1. LOSARTAN POTASSIUM AND HYDROCHLOROTHIAZIDE [Concomitant]
  2. DIOVAN HCT [Suspect]
     Dosage: 80/12.5 MG
  3. ATENOLOL [Concomitant]
     Indication: PALPITATIONS

REACTIONS (5)
  - SKIN SENSITISATION [None]
  - TENSION [None]
  - FATIGUE [None]
  - ENDOMETRIOSIS [None]
  - PALPITATIONS [None]
